FAERS Safety Report 14176101 (Version 1)
Quarter: 2017Q4

REPORT INFORMATION
  Report Type: Spontaneous
  Country: GR (occurrence: GR)
  Receive Date: 20171109
  Receipt Date: 20171109
  Transmission Date: 20180321
  Serious: Yes (Other)
  Sender: FDA-Public Use
  Company Number: GR-EMD SERONO-8200369

PATIENT
  Sex: Male

DRUGS (1)
  1. REBIF [Suspect]
     Active Substance: INTERFERON BETA-1A
     Indication: PRODUCT USED FOR UNKNOWN INDICATION
     Dosage: FOR 10 YEARS

REACTIONS (4)
  - Pyrexia [Unknown]
  - Plasma cell myeloma [Unknown]
  - Monoclonal immunoglobulin present [Unknown]
  - Red blood cell sedimentation rate increased [Unknown]
